FAERS Safety Report 6068461-2 (Version None)
Quarter: 2009Q1

REPORT INFORMATION
  Report Type: 
  Country: None (occurrence: None)
  Receive Date: 20090206
  Receipt Date: 20090203
  Transmission Date: 20090719
  Serious: Yes (Other)
  Sender: FDA-Public Use
  Company Number: US-JNJCH-2009003107

PATIENT
  Age: 4 Year
  Sex: Female

DRUGS (1)
  1. ROLAIDS EXTRA STRENGTH PLUS GAS FRESHMINT [Suspect]
     Indication: ACCIDENTAL EXPOSURE
     Dosage: TEXT:UNKNOWN ONCE
     Route: 048
     Dates: start: 20090203, end: 20090203

REACTIONS (4)
  - ACCIDENTAL DRUG INTAKE BY CHILD [None]
  - DELIRIUM [None]
  - PYREXIA [None]
  - VOMITING [None]
